FAERS Safety Report 4360174-8 (Version None)
Quarter: 2004Q2

REPORT INFORMATION
  Report Type: 
  Country: None (occurrence: None)
  Receive Date: 20040513
  Receipt Date: 20040505
  Transmission Date: 20050107
  Serious: Yes (Hospitalization)
  Sender: FDA-Public Use
  Company Number: US-JNJFOC-20040304407

PATIENT
  Age: 75 Year
  Sex: Male
  Weight: 98.8842 kg

DRUGS (6)
  1. DITROPAN XL [Suspect]
     Indication: URINARY TRACT DISORDER
     Dosage: 15 MG, ORAL
     Route: 048
  2. ALTACE [Concomitant]
  3. LIPITOR [Concomitant]
  4. NORVASC [Concomitant]
  5. TOPROL-XL [Concomitant]
  6. ARICEPT [Concomitant]

REACTIONS (2)
  - URINARY INCONTINENCE [None]
  - URINARY TRACT INFECTION [None]
